FAERS Safety Report 9069182 (Version 1)
Quarter: 2013Q1

REPORT INFORMATION
  Report Type: Spontaneous
  Country: US (occurrence: US)
  Receive Date: 20130215
  Receipt Date: 20130215
  Transmission Date: 20140127
  Serious: No
  Sender: FDA-Public Use
  Company Number: US-009507513-1302USA002687

PATIENT
  Age: 54 None
  Sex: Female

DRUGS (7)
  1. THYROID [Concomitant]
  2. PEPCID AC [Concomitant]
  3. FLUTICASONE [Concomitant]
  4. VENTOLIN (ALBUTEROL SULFATE) [Concomitant]
  5. ZYRTEC [Concomitant]
  6. DULERA [Suspect]
     Indication: ASTHMA
     Dosage: 100 MCG/5 MCG-EVERY 12 HOURS DAILY
     Route: 055
     Dates: start: 201203
  7. [THERAPY UNSPECIFIED] [Suspect]
     Indication: HYPERSENSITIVITY

REACTIONS (7)
  - Chest discomfort [Recovered/Resolved]
  - Hot flush [Recovered/Resolved]
  - Hyperhidrosis [Recovered/Resolved]
  - Dyspnoea [Recovered/Resolved]
  - Chills [Recovered/Resolved]
  - Headache [Recovered/Resolved]
  - Product quality issue [Unknown]
